FAERS Safety Report 24193122 (Version 2)
Quarter: 2024Q3

REPORT INFORMATION
  Report Type: Report from Study
  Country: BR (occurrence: BR)
  Receive Date: 20240809
  Receipt Date: 20240819
  Transmission Date: 20241016
  Serious: Yes (Hospitalization, Other)
  Sender: JOHNSON AND JOHNSON
  Company Number: BR-JNJFOC-20240811427

PATIENT
  Age: 49 Year
  Sex: Male
  Weight: 80 kg

DRUGS (3)
  1. REMICADE [Suspect]
     Active Substance: INFLIXIMAB
     Indication: Crohn^s disease
     Route: 041
  2. REMICADE [Suspect]
     Active Substance: INFLIXIMAB
     Route: 041
     Dates: start: 20221214, end: 20240613
  3. REMICADE [Suspect]
     Active Substance: INFLIXIMAB
     Route: 041

REACTIONS (10)
  - Asphyxia [Unknown]
  - Infusion related reaction [Unknown]
  - Diarrhoea [Unknown]
  - Crohn^s disease [Unknown]
  - Therapeutic product effect decreased [Unknown]
  - Erythema [Unknown]
  - Arthralgia [Unknown]
  - Salivary hypersecretion [Unknown]
  - Back pain [Unknown]
  - Off label use [Unknown]

NARRATIVE: CASE EVENT DATE: 20240620
